FAERS Safety Report 10213685 (Version 1)
Quarter: 2014Q2

REPORT INFORMATION
  Report Type: Spontaneous
  Country: US (occurrence: None)
  Receive Date: 20140602
  Receipt Date: 20140602
  Transmission Date: 20141212
  Serious: Yes (Other)
  Sender: FDA-Public Use
  Company Number: None

PATIENT
  Age: 63 Year
  Sex: Female
  Weight: 102.06 kg

DRUGS (1)
  1. VERSED [Suspect]
     Indication: SEDATIVE THERAPY
     Dates: start: 20140529, end: 20140529

REACTIONS (5)
  - Pain [None]
  - Anxiety [None]
  - Crying [None]
  - Drug interaction [None]
  - Drug ineffective [None]
